FAERS Safety Report 5274235-2 (Version None)
Quarter: 2007Q1

REPORT INFORMATION
  Report Type: 
  Country: None (occurrence: None)
  Receive Date: 20070323
  Receipt Date: 20070315
  Transmission Date: 20070707
  Serious: Yes (Death)
  Sender: FDA-Public Use
  Company Number: AU-JNJFOC-20070200925

PATIENT
  Sex: Male

DRUGS (12)
  1. TMC114 [Suspect]
     Route: 048
  2. TMC114 [Suspect]
     Indication: HIV INFECTION
     Route: 048
  3. RETROVIR [Suspect]
     Indication: HIV INFECTION
     Route: 048
  4. KALETRA [Suspect]
     Indication: HIV INFECTION
     Route: 048
  5. AVANZA [Concomitant]
     Route: 048
  6. OXYCODONE HCL [Concomitant]
     Route: 065
  7. VALIUM [Concomitant]
     Route: 065
  8. FLUCONAZOLE [Concomitant]
     Route: 065
  9. ACETAMINOPHEN [Concomitant]
     Dosage: DOSE = 100 - 500MG
     Route: 048
  10. BACTRIM DS [Concomitant]
     Route: 065
  11. PROCHLORPERAZINE [Concomitant]
     Route: 065
  12. PARIET [Concomitant]
     Route: 048

REACTIONS (6)
  - CARDIO-RESPIRATORY ARREST [None]
  - HEPATITIS [None]
  - HYPOTENSION [None]
  - METABOLIC SYNDROME [None]
  - PANCREATITIS [None]
  - RENAL FAILURE ACUTE [None]
